FAERS Safety Report 18393140 (Version 6)
Quarter: 2022Q2

REPORT INFORMATION
  Report Type: Spontaneous
  Country: GB (occurrence: GB)
  Receive Date: 20201016
  Receipt Date: 20220402
  Transmission Date: 20220721
  Serious: Yes (Hospitalization)
  Sender: FDA-Public Use
  Company Number: None

PATIENT

DRUGS (13)
  1. ENTRESTO [Suspect]
     Active Substance: SACUBITRIL\VALSARTAN
     Indication: Product used for unknown indication
     Dosage: 50 MG, BID
     Route: 065
  2. ENTRESTO [Suspect]
     Active Substance: SACUBITRIL\VALSARTAN
     Dosage: 100 MG, QD (50 MG, BID)
     Route: 065
  3. ENTRESTO [Suspect]
     Active Substance: SACUBITRIL\VALSARTAN
     Dosage: 50 MG, BID
     Route: 065
  4. BISOPROLOL [Suspect]
     Active Substance: BISOPROLOL
     Indication: Product used for unknown indication
     Dosage: UNK
     Route: 065
  5. BISOPROLOL [Suspect]
     Active Substance: BISOPROLOL
     Dosage: BISOPROLOL UNKNOWN
     Route: 065
  6. OMEPRAZOLE [Suspect]
     Active Substance: OMEPRAZOLE
     Indication: Duodenal ulcer
     Dosage: UNK
     Route: 065
  7. OMEPRAZOLE [Suspect]
     Active Substance: OMEPRAZOLE
     Dosage: OMEPRAZOLE UNKNOWN
     Route: 065
  8. TAMSULOSIN [Suspect]
     Active Substance: TAMSULOSIN
     Indication: Product used for unknown indication
     Dosage: UNK
     Route: 065
  9. TAMSULOSIN [Suspect]
     Active Substance: TAMSULOSIN
     Dosage: TAMSULOSIN UNKNOWN
     Route: 065
  10. OXYCODONE [Suspect]
     Active Substance: OXYCODONE
     Indication: Product used for unknown indication
     Dosage: UNK
     Route: 065
  11. OXYCODONE [Suspect]
     Active Substance: OXYCODONE
     Dosage: OXYCODONE UNKNOWN
     Route: 065
  12. DOCUSATE [Suspect]
     Active Substance: DOCUSATE
     Indication: Product used for unknown indication
     Dosage: UNK
     Route: 065
  13. DOCUSATE [Suspect]
     Active Substance: DOCUSATE
     Dosage: DOCUSATE UNKNOWN
     Route: 065

REACTIONS (2)
  - Acute kidney injury [Unknown]
  - Hyperkalaemia [Unknown]
